FAERS Safety Report 8611586-5 (Version None)
Quarter: 2012Q3

REPORT INFORMATION
  Report Type: 
  Country: None (occurrence: None)
  Receive Date: 20120822
  Receipt Date: 20120815
  Transmission Date: 20120928
  Serious: Yes (Other)
  Sender: FDA-Public Use
  Company Number: PHEH2012US013388

PATIENT
  Sex: Female

DRUGS (2)
  1. GILENYA [Suspect]
     Dosage: 0.5 MG, QOD
     Route: 048
  2. GILENYA [Suspect]
     Indication: MULTIPLE SCLEROSIS
     Dosage: 0.5 MG, QD
     Route: 048
     Dates: start: 20111229

REACTIONS (8)
  - TREMOR [None]
  - DYSKINESIA [None]
  - PARAESTHESIA [None]
  - DIZZINESS [None]
  - MUSCLE SPASMS [None]
  - PAIN IN EXTREMITY [None]
  - CENTRAL NERVOUS SYSTEM LESION [None]
  - INAPPROPRIATE SCHEDULE OF DRUG ADMINISTRATION [None]
